FAERS Safety Report 9247990 (Version 1)
Quarter: 2013Q1

REPORT INFORMATION
  Report Type: Spontaneous
  Country: US (occurrence: None)
  Receive Date: 20130305
  Receipt Date: 20130305
  Transmission Date: 20140127
  Serious: Yes (Other)
  Sender: FDA-Public Use
  Company Number: 163-21880-12092125

PATIENT
  Age: 83 Year
  Sex: Female
  Weight: 56.25 kg

DRUGS (6)
  1. REVLIMID [Suspect]
     Indication: PLASMA CELL MYELOMA
     Route: 048
     Dates: start: 201206
  2. LISINOPRIL(LISINOPRIL) [Concomitant]
  3. TOPROL XL (METOPROLOL SUCCINATE) [Concomitant]
  4. METFORMIN (METFORMIN) [Concomitant]
  5. MECLIZINE (MECLOZINE) [Concomitant]
  6. ASA (ACETYLSALICYLIC ACID) [Concomitant]

REACTIONS (1)
  - Anaemia [None]
